FAERS Safety Report 25440305 (Version 2)
Quarter: 2025Q3

REPORT INFORMATION
  Report Type: Spontaneous
  Country: US (occurrence: US)
  Receive Date: 20250616
  Receipt Date: 20250804
  Transmission Date: 20251021
  Serious: Yes (Other)
  Sender: CENTRAL ADMIXTURE PHARMACY SERVICES, INC
  Company Number: US-Central Admixture Pharmacy Services, Inc. - Phoenix-2178774

PATIENT
  Age: 1 Day
  Weight: 1.191 kg

DRUGS (1)
  1. AMINO ACIDS\DEXTROSE [Suspect]
     Active Substance: AMINO ACIDS\DEXTROSE
     Indication: Parenteral nutrition
     Dates: start: 20250521, end: 20250521

REACTIONS (1)
  - Hyperglycaemia [Recovered/Resolved]

NARRATIVE: CASE EVENT DATE: 20250521
